FAERS Safety Report 20097511 (Version 2)
Quarter: 2021Q4

REPORT INFORMATION
  Report Type: Spontaneous
  Country: GB (occurrence: GB)
  Receive Date: 20211122
  Receipt Date: 20211207
  Transmission Date: 20220303
  Serious: Yes (Other)
  Sender: FDA-Public Use
  Company Number: GB-SA-SAC20211118001136

PATIENT
  Age: 30 Year
  Sex: Male

DRUGS (1)
  1. ELIGLUSTAT [Suspect]
     Active Substance: ELIGLUSTAT
     Indication: Gaucher^s disease type I

REACTIONS (1)
  - Extranodal marginal zone B-cell lymphoma (MALT type) [Recovering/Resolving]
